FAERS Safety Report 8596798-1 (Version None)
Quarter: 2012Q3

REPORT INFORMATION
  Report Type: 
  Country: None (occurrence: None)
  Receive Date: 20120815
  Receipt Date: 20120801
  Transmission Date: 20120928
  Serious: No
  Sender: FDA-Public Use
  Company Number: US-B.I. PHARMACEUTICALS,INC./RIDGEFIELD-2012-BP-17371BP

PATIENT
  Sex: Female

DRUGS (7)
  1. AGGRENOX [Suspect]
     Indication: CEREBROVASCULAR ACCIDENT PROPHYLAXIS
     Route: 048
     Dates: start: 20120601
  2. LISINOPRIL [Concomitant]
     Indication: HYPERTENSION
     Route: 048
  3. METOPROLOL TARTRATE [Concomitant]
     Indication: HEART RATE INCREASED
     Route: 048
  4. ZYRTEC [Concomitant]
     Indication: SEASONAL ALLERGY
     Route: 048
  5. CONTRAST DYE [Suspect]
     Indication: COMPUTERISED TOMOGRAM
     Route: 042
     Dates: start: 20120701, end: 20120701
  6. SIMVASTATIN [Concomitant]
     Indication: BLOOD CHOLESTEROL INCREASED
     Route: 048
  7. POTASSIUM [Concomitant]
     Indication: ROUTINE HEALTH MAINTENANCE
     Route: 048

REACTIONS (2)
  - GLOSSODYNIA [None]
  - TONGUE OEDEMA [None]
